FAERS Safety Report 4350861-X (Version None)
Quarter: 2004Q2

REPORT INFORMATION
  Report Type: 
  Country: None (occurrence: None)
  Receive Date: 20040427
  Receipt Date: 20040409
  Transmission Date: 20050107
  Serious: Yes (Hospitalization)
  Sender: FDA-Public Use
  Company Number: 200402813

PATIENT
  Sex: Male

DRUGS (1)
  1. ZYMAR [Suspect]
     Indication: HERPES OPHTHALMIC

REACTIONS (1)
  - ARRHYTHMIA [None]
